FAERS Safety Report 4728553-4 (Version None)
Quarter: 2005Q3

REPORT INFORMATION
  Report Type: 
  Country: None (occurrence: None)
  Receive Date: 20050727
  Receipt Date: 20050714
  Transmission Date: 20060218
  Serious: Yes (Life-Threatening, Hospitalization, Other)
  Sender: FDA-Public Use
  Company Number: 2005028641

PATIENT
  Age: 47 Year
  Sex: Female
  Weight: 65.318 kg

DRUGS (3)
  1. NEURONTIN [Suspect]
     Indication: PAIN IN EXTREMITY
     Dosage: 300 MG ORAL
     Route: 048
  2. HYDROCODONE BITARTRATE [Suspect]
     Indication: BACK DISORDER
     Dosage: ORAL
     Route: 048
  3. SOMA [Suspect]
     Indication: BACK DISORDER
     Dosage: ORAL
     Route: 048

REACTIONS (4)
  - COMA [None]
  - INTENTIONAL MISUSE [None]
  - MULTIPLE DRUG OVERDOSE [None]
  - SUICIDE ATTEMPT [None]
